FAERS Safety Report 25344004 (Version 2)
Quarter: 2025Q2

REPORT INFORMATION
  Report Type: Spontaneous
  Country: US (occurrence: US)
  Receive Date: 20250521
  Receipt Date: 20250607
  Transmission Date: 20250716
  Serious: No
  Sender: SANOFI AVENTIS
  Company Number: US-SA-2025SA143377

PATIENT
  Age: 63 Year
  Sex: Male

DRUGS (2)
  1. DUPIXENT [Suspect]
     Active Substance: DUPILUMAB
     Indication: Dermatitis atopic
     Route: 058
     Dates: start: 20250324, end: 20250324
  2. DUPIXENT [Suspect]
     Active Substance: DUPILUMAB
     Indication: Multiple allergies
     Dosage: 300 MG, QOW
     Route: 058
     Dates: start: 202504

REACTIONS (4)
  - Alopecia [Unknown]
  - Lacrimation increased [Not Recovered/Not Resolved]
  - Vision blurred [Not Recovered/Not Resolved]
  - Product use in unapproved indication [Unknown]

NARRATIVE: CASE EVENT DATE: 20250101
